FAERS Safety Report 19501369 (Version 2)
Quarter: 2021Q3

REPORT INFORMATION
  Report Type: Spontaneous
  Country: US (occurrence: US)
  Receive Date: 20210707
  Receipt Date: 20210906
  Transmission Date: 20211014
  Serious: Yes (Other)
  Sender: FDA-Public Use
  Company Number: NVSC2021US138139

PATIENT
  Age: 49 Year
  Sex: Male

DRUGS (1)
  1. COSENTYX [Suspect]
     Active Substance: SECUKINUMAB
     Indication: PSORIASIS
     Dosage: 300 MG/KG, QW
     Route: 058
     Dates: start: 20201216, end: 20201223

REACTIONS (2)
  - Oesophageal candidiasis [Recovering/Resolving]
  - Genital candidiasis [Recovering/Resolving]

NARRATIVE: CASE EVENT DATE: 20201216
